FAERS Safety Report 11888663 (Version 1)
Quarter: 2016Q1

REPORT INFORMATION
  Report Type: Spontaneous
  Country: US (occurrence: None)
  Receive Date: 20160104
  Receipt Date: 20160104
  Transmission Date: 20160526
  Serious: Yes (Other)
  Sender: FDA-Public Use
  Company Number: None

PATIENT
  Age: 29 Year
  Sex: Female
  Weight: 77.11 kg

DRUGS (4)
  1. LEXAPRO [Suspect]
     Active Substance: ESCITALOPRAM OXALATE
     Indication: AFFECTIVE DISORDER
     Dosage: 1 PILL ONCE DAILY
     Route: 048
     Dates: start: 20151203, end: 20151209
  2. MULTI-VITAMIN [Concomitant]
     Active Substance: .ALPHA.-TOCOPHEROL ACETATE, DL-\ASCORBIC ACID\CYANOCOBALAMIN\FLUORIDE ION\FOLIC ACID\NIACIN\PYRIDOXINE\RIBOFLAVIN\THIAMINE\VITAMIN A\VITAMIN D
  3. LEXAPRO [Suspect]
     Active Substance: ESCITALOPRAM OXALATE
     Indication: ANXIETY
     Dosage: 1 PILL ONCE DAILY
     Route: 048
     Dates: start: 20151203, end: 20151209
  4. LEXAPRO [Suspect]
     Active Substance: ESCITALOPRAM OXALATE
     Indication: DEPRESSION
     Dosage: 1 PILL ONCE DAILY
     Route: 048
     Dates: start: 20151203, end: 20151209

REACTIONS (11)
  - Depression [None]
  - Asthenia [None]
  - Nausea [None]
  - Suicidal ideation [None]
  - Insomnia [None]
  - Feeling abnormal [None]
  - Anxiety [None]
  - Agitation [None]
  - Diarrhoea [None]
  - Crying [None]
  - Adverse drug reaction [None]

NARRATIVE: CASE EVENT DATE: 20151203
